FAERS Safety Report 7547230-8 (Version None)
Quarter: 2011Q2

REPORT INFORMATION
  Report Type: 
  Country: None (occurrence: None)
  Receive Date: 20110614
  Receipt Date: 20110601
  Transmission Date: 20111010
  Serious: Yes (Hospitalization)
  Sender: FDA-Public Use
  Company Number: CZ-UCBSA-020306

PATIENT
  Sex: Female
  Weight: 72 kg

DRUGS (6)
  1. CIMZIA [Suspect]
     Indication: RHEUMATOID ARTHRITIS
     Dosage: CDP870-050
     Route: 058
     Dates: start: 20051201, end: 20060518
  2. NIMESULID [Concomitant]
     Indication: RHEUMATOID ARTHRITIS
     Route: 048
     Dates: start: 20050920
  3. ACIDUM FOLICUM [Concomitant]
     Indication: PROPHYLAXIS
     Route: 048
     Dates: start: 20060120
  4. METHYLPREDNISOLONE [Concomitant]
     Indication: RHEUMATOID ARTHRITIS
     Route: 048
     Dates: start: 20031201
  5. CIMZIA [Suspect]
     Dosage: NO OF DOSES RECEIVED: 115
     Route: 058
     Dates: start: 20060518
  6. METHOTREXATE [Concomitant]
     Indication: RHEUMATOID ARTHRITIS
     Route: 048
     Dates: start: 20060705

REACTIONS (1)
  - ANAL ABSCESS [None]
